FAERS Safety Report 4434280-3 (Version None)
Quarter: 2004Q3

REPORT INFORMATION
  Report Type: 
  Country: None (occurrence: None)
  Receive Date: 20040825
  Receipt Date: 20040811
  Transmission Date: 20050211
  Serious: Yes (Hospitalization)
  Sender: FDA-Public Use
  Company Number: 238610

PATIENT
  Age: 68 Year

DRUGS (8)
  1. NOVONORM (REPAGLINIDE) TABLET, 2.0 MG [Suspect]
     Indication: DIABETES MELLITUS NON-INSULIN-DEPENDENT
     Dosage: 8 MG, PER ORAL
     Route: 048
     Dates: start: 20030601
  2. ALDACTINE (HYDROFLUMETHIAZIDE, SPIRONOLACTONE) [Concomitant]
  3. VASOBRAL (CAFFEINE, DIHYDROERGOCRYPTINE MESILATE) [Concomitant]
  4. ACTOS [Concomitant]
  5. SERETIDE (FLUTICASONE PROPIONATE, SALMETEROL) [Concomitant]
  6. FENOFIBRATE [Concomitant]
  7. XALATAN [Concomitant]
  8. AMOXICILLIN [Concomitant]

REACTIONS (3)
  - PURPURA [None]
  - SKIN NECROSIS [None]
  - VASCULITIS [None]
